FAERS Safety Report 18312672 (Version 2)
Quarter: 2020Q4

REPORT INFORMATION
  Report Type: Spontaneous
  Country: AU (occurrence: AU)
  Receive Date: 20200925
  Receipt Date: 20201001
  Transmission Date: 20210113
  Serious: Yes (Hospitalization)
  Sender: FDA-Public Use
  Company Number: AU-BAXTER-2020BAX019377

PATIENT
  Sex: Female

DRUGS (10)
  1. VANCOMYCIN [Suspect]
     Active Substance: VANCOMYCIN
     Dosage: VIA INFUSOR LV 10.
     Route: 065
  2. BAXTER 0.9% SODIUM CHLORIDE 9G_L INJECTION BP BAG AHB1324 [Suspect]
     Active Substance: SODIUM CHLORIDE
     Dosage: WITH VANCOMYCIN 1500 MG PER 24 HOURS
     Route: 065
  3. STERILE WATER [Suspect]
     Active Substance: WATER
     Indication: MEDICATION DILUTION
     Dosage: WITH VANCOMYCIN 5.6 G (2X2.8 G) PER 24 HOURS
     Route: 065
  4. STERILE WATER [Suspect]
     Active Substance: WATER
     Dosage: WITH VANCOMYCIN 750 MG TWICE A DAY
     Route: 065
  5. STERILE WATER [Suspect]
     Active Substance: WATER
     Dosage: WITH VANCOMYCIN 1500 MG PER 24 HOURS
     Route: 065
  6. BAXTER 0.9% SODIUM CHLORIDE 9G_L INJECTION BP BAG AHB1324 [Suspect]
     Active Substance: SODIUM CHLORIDE
     Indication: MEDICATION DILUTION
     Dosage: WITH VANCOMYCIN 5.6 G (2X2.8 G) PER 24 HOURS
     Route: 065
  7. VANCOMYCIN [Suspect]
     Active Substance: VANCOMYCIN
     Dosage: VANCOMYCIN 5.6 G (2X2.8 G) PER 24 HOURS
     Route: 065
  8. VANCOMYCIN [Suspect]
     Active Substance: VANCOMYCIN
     Indication: PRODUCT USED FOR UNKNOWN INDICATION
     Dosage: VANCOMYCIN VIA BOLUS DOSES - 10 MG PER MINUTE
     Route: 040
  9. BAXTER 0.9% SODIUM CHLORIDE 9G_L INJECTION BP BAG AHB1324 [Suspect]
     Active Substance: SODIUM CHLORIDE
     Dosage: WITH VANCOMYCIN 750 MG TWICE A DAY
     Route: 065
  10. VANCOMYCIN [Suspect]
     Active Substance: VANCOMYCIN
     Dosage: VANCOMYCIN 750 MG TWICE A DAY
     Route: 065

REACTIONS (1)
  - Drug level increased [Unknown]

NARRATIVE: CASE EVENT DATE: 2020
